FAERS Safety Report 8503480-5 (Version None)
Quarter: 2012Q3

REPORT INFORMATION
  Report Type: 
  Country: None (occurrence: None)
  Receive Date: 20120711
  Receipt Date: 20120618
  Transmission Date: 20120928
  Serious: Yes (Other)
  Sender: FDA-Public Use
  Company Number: GB-GLAXOSMITHKLINE-B0726922A

PATIENT
  Sex: Male

DRUGS (2)
  1. VENTOLIN [Suspect]
     Indication: ASTHMA
     Dosage: 100MCG AS REQUIRED
     Route: 055
  2. THEOPHYLLINE [Concomitant]

REACTIONS (3)
  - ASTHMA [None]
  - FATIGUE [None]
  - VERTIGO [None]
